FAERS Safety Report 12797816 (Version 1)
Quarter: 2016Q3

REPORT INFORMATION
  Report Type: Spontaneous
  Country: US (occurrence: US)
  Receive Date: 20160930
  Receipt Date: 20160930
  Transmission Date: 20161109
  Serious: No
  Sender: FDA-Public Use
  Company Number: US-GLAXOSMITHKLINE-US2016139882

PATIENT
  Age: 76 Year
  Sex: Female

DRUGS (7)
  1. DETROL LA [Concomitant]
     Active Substance: TOLTERODINE TARTRATE
  2. VITAMIN D [Concomitant]
     Active Substance: CHOLECALCIFEROL
  3. BREO ELLIPTA [Suspect]
     Active Substance: FLUTICASONE FUROATE\VILANTEROL TRIFENATATE
     Indication: BRONCHITIS CHRONIC
     Dosage: 100/25
     Route: 055
     Dates: start: 201607
  4. WELLBUTRIN [Concomitant]
     Active Substance: BUPROPION HYDROCHLORIDE
  5. LEXAPRO [Concomitant]
     Active Substance: ESCITALOPRAM OXALATE
  6. METAMUCIL [Concomitant]
     Active Substance: PLANTAGO SEED
  7. DEPLIN [Concomitant]
     Active Substance: LEVOMEFOLATE CALCIUM

REACTIONS (1)
  - Dysphonia [Not Recovered/Not Resolved]

NARRATIVE: CASE EVENT DATE: 201607
